FAERS Safety Report 7226444-0 (Version None)
Quarter: 2010Q4

REPORT INFORMATION
  Report Type: 
  Country: None (occurrence: None)
  Receive Date: 20101126
  Receipt Date: 20100812
  Transmission Date: 20110411
  Serious: No
  Sender: FDA-Public Use
  Company Number: 313362

PATIENT
  Sex: Male

DRUGS (1)
  1. VICTOZA [Suspect]
     Indication: PRODUCT USED FOR UNKNOWN INDICATION

REACTIONS (1)
  - CHEST PAIN [None]
